FAERS Safety Report 4527736-6 (Version None)
Quarter: 2004Q4

REPORT INFORMATION
  Report Type: 
  Country: None (occurrence: None)
  Receive Date: 20041215
  Receipt Date: 20041028
  Transmission Date: 20050328
  Serious: Yes (Death, Hospitalization)
  Sender: FDA-Public Use
  Company Number: SE-ROCHE-384478

PATIENT
  Age: 76 Year
  Sex: Female
  Weight: 60 kg

DRUGS (3)
  1. XELODA [Suspect]
     Dosage: GIVEN IN TWO DOSES OF 2000 MG AND 2150 MG DAILY.
     Route: 048
     Dates: start: 20040830, end: 20040912
  2. ZOMETA [Concomitant]
     Route: 065
     Dates: start: 20040830
  3. PRIMPERAN [Concomitant]
     Dosage: PRN
     Route: 048

REACTIONS (13)
  - BLOOD CREATININE INCREASED [None]
  - BONE MARROW DEPRESSION [None]
  - DIARRHOEA [None]
  - FEBRILE NEUTROPENIA [None]
  - GENERAL PHYSICAL HEALTH DETERIORATION [None]
  - HALLUCINATION [None]
  - HYPERGLYCAEMIA [None]
  - LEUKOPENIA [None]
  - MUCOSAL INFLAMMATION [None]
  - MULTI-ORGAN FAILURE [None]
  - POISONING [None]
  - PYREXIA [None]
  - VOMITING [None]
